FAERS Safety Report 9331357 (Version 3)
Quarter: 2013Q3

REPORT INFORMATION
  Report Type: Spontaneous
  Country: NO (occurrence: NO)
  Receive Date: 20130605
  Receipt Date: 20130905
  Transmission Date: 20140515
  Serious: Yes (Death)
  Sender: FDA-Public Use
  Company Number: NO-B.I. PHARMACEUTICALS,INC./RIDGEFIELD-2013-SW-00294NO

PATIENT
  Age: 95 Year
  Sex: Female

DRUGS (6)
  1. PRADAXA [Suspect]
     Indication: ATRIAL FIBRILLATION
     Dosage: 220 MG
     Route: 048
     Dates: start: 20130315, end: 20130422
  2. GLUCOSEAMINE [Concomitant]
     Indication: ARTHRALGIA
     Dosage: 800 MG
     Route: 048
  3. SELO-ZOK [Concomitant]
     Indication: HYPERTENSION
     Route: 048
  4. TRIOBE [Concomitant]
     Route: 048
  5. TAMIFLU [Concomitant]
     Indication: INFLUENZA
     Dates: start: 20130406, end: 20130416
  6. TOLVON [Concomitant]
     Indication: DEPRESSION
     Dosage: 10 MG
     Route: 048

REACTIONS (1)
  - Duodenal ulcer haemorrhage [Fatal]
